FAERS Safety Report 14968768 (Version 1)
Quarter: 2018Q2

REPORT INFORMATION
  Report Type: Spontaneous
  Country: IT (occurrence: IT)
  Receive Date: 20180604
  Receipt Date: 20180604
  Transmission Date: 20180711
  Serious: Yes (Other)
  Sender: FDA-Public Use
  Company Number: IT-PFIZER INC-2018220109

PATIENT
  Age: 17 Year
  Sex: Male

DRUGS (6)
  1. RISPERDAL [Suspect]
     Active Substance: RISPERIDONE
     Dosage: 24 MG, SINGLE
     Route: 048
     Dates: start: 20180420, end: 20180420
  2. RISPERDAL [Suspect]
     Active Substance: RISPERIDONE
     Dosage: UNK
     Route: 048
  3. HALCION [Suspect]
     Active Substance: TRIAZOLAM
     Dosage: 1.5 MG, SINGLE
     Route: 048
     Dates: start: 20180420, end: 20180420
  4. DIAZEPAM. [Suspect]
     Active Substance: DIAZEPAM
     Dosage: 90 MG, SINGLE
     Route: 048
     Dates: start: 20180420, end: 20180420
  5. ENTUMIN [Suspect]
     Active Substance: CLOTHIAPINE
     Dosage: 120 MG, SINGLE
     Route: 048
     Dates: start: 20180420, end: 20180420
  6. STILNOX [Suspect]
     Active Substance: ZOLPIDEM TARTRATE
     Dosage: 60 MG, SINGLE
     Route: 048
     Dates: start: 20180420, end: 20180420

REACTIONS (3)
  - Sluggishness [Unknown]
  - Intentional self-injury [Unknown]
  - Intentional overdose [Unknown]

NARRATIVE: CASE EVENT DATE: 20180420
